FAERS Safety Report 5780216-2 (Version None)
Quarter: 2008Q2

REPORT INFORMATION
  Report Type: 
  Country: None (occurrence: None)
  Receive Date: 20080620
  Receipt Date: 20080610
  Transmission Date: 20081010
  Serious: Yes (Death)
  Sender: FDA-Public Use
  Company Number: JP-ABBOTT-08P-087-0457011-00

PATIENT
  Age: 78 Year
  Sex: Male

DRUGS (3)
  1. LEUPLIN SR FOR INJECTION KIT [Suspect]
     Indication: PROSTATE CANCER STAGE II
     Route: 058
     Dates: start: 20051228, end: 20070604
  2. LEUPLIN SR FOR INJECTION KIT [Suspect]
     Route: 058
     Dates: start: 20071106, end: 20071106
  3. LEUPLIN SR FOR INJECTION KIT [Suspect]
     Dates: start: 20051130, end: 20051130

REACTIONS (1)
  - MALIGNANT NEOPLASM OF RENAL PELVIS [None]
